FAERS Safety Report 5981899-4 (Version None)
Quarter: 2008Q4

REPORT INFORMATION
  Report Type: 
  Country: None (occurrence: None)
  Receive Date: 20081205
  Receipt Date: 20081124
  Transmission Date: 20090506
  Serious: Yes (Other)
  Sender: FDA-Public Use
  Company Number: IL-GENENTECH-272727

PATIENT
  Age: 55 Year
  Sex: Female

DRUGS (3)
  1. AVASTIN [Suspect]
     Indication: BREAST CANCER METASTATIC
     Dosage: 600 MG, Q2W
     Route: 042
     Dates: start: 20071201
  2. PACLITAXEL [Concomitant]
     Indication: BREAST CANCER METASTATIC
     Dosage: UNK
     Dates: start: 20071201, end: 20080801
  3. ANTIHYPERTENSIVE [Concomitant]
     Indication: HYPERTENSION

REACTIONS (3)
  - DYSPHONIA [None]
  - THYROID DISORDER [None]
  - WEIGHT DECREASED [None]
